FAERS Safety Report 15032307 (Version 2)
Quarter: 2018Q2

REPORT INFORMATION
  Report Type: Spontaneous
  Country: US (occurrence: US)
  Receive Date: 20180619
  Receipt Date: 20180627
  Transmission Date: 20180711
  Serious: Yes (Other)
  Sender: FDA-Public Use
  Company Number: US-MITSUBISHI TANABE PHARMA CORPORATION-MPE2018-0014025

PATIENT
  Age: 53 Year
  Sex: Female

DRUGS (8)
  1. TRAZODONE [Concomitant]
     Active Substance: TRAZODONE HYDROCHLORIDE
     Dosage: 100MG AT NIGHT
     Route: 065
  2. NUEDEXTA [Concomitant]
     Active Substance: DEXTROMETHORPHAN HYDROBROMIDE\QUINIDINE SULFATE
     Dosage: 20/10
     Route: 065
  3. RADICAVA [Suspect]
     Active Substance: EDARAVONE
     Indication: AMYOTROPHIC LATERAL SCLEROSIS
     Route: 042
     Dates: start: 20180409, end: 20180505
  4. METOPROLOL. [Concomitant]
     Active Substance: METOPROLOL
     Dosage: 1/2 TABLET EVERY 6 HOURS
     Route: 065
  5. BACLOFEN. [Concomitant]
     Active Substance: BACLOFEN
     Dosage: 10MG TWICE DAILY; MAY HAVE ONE ADDITONAL DOSE IF NEEDED
     Route: 065
  6. GLYCOPYROLATE [Concomitant]
     Active Substance: GLYCOPYRROLATE
     Dosage: 4MG IN THE MORNING, 2MG AT NOON AND 4MG AT NIGHT
     Route: 065
  7. RILUZOLE. [Concomitant]
     Active Substance: RILUZOLE
     Route: 065
  8. RANITIDINE. [Concomitant]
     Active Substance: RANITIDINE
     Dosage: 10ML PER G TUBE TWICE DAILY
     Route: 065

REACTIONS (4)
  - Chest discomfort [Recovered/Resolved]
  - Bronchospasm [Recovered/Resolved]
  - Sputum increased [Recovered/Resolved]
  - Inspiratory capacity increased [Recovered/Resolved]

NARRATIVE: CASE EVENT DATE: 20180501
